FAERS Safety Report 8592356-3 (Version None)
Quarter: 2012Q3

REPORT INFORMATION
  Report Type: 
  Country: None (occurrence: None)
  Receive Date: 20120814
  Receipt Date: 20120629
  Transmission Date: 20120928
  Serious: Yes (Other)
  Sender: FDA-Public Use
  Company Number: JP-009507513-2012SP026951

PATIENT

DRUGS (26)
  1. PEG-INTRON [Suspect]
     Indication: HEPATITIS C
     Dosage: 1.5MCG/KG/WEEK
     Route: 058
     Dates: start: 20120309, end: 20120420
  2. ANTIVIRAL (UNSPECIFIED) [Suspect]
     Indication: HEPATITIS C
     Dosage: 2250 MG, QD
     Route: 048
     Dates: start: 20120309, end: 20120426
  3. MIYA BM [Concomitant]
     Indication: FLATULENCE
     Dosage: 3 G, QD
     Route: 048
     Dates: start: 20120316, end: 20120330
  4. TAIPEMIN [Concomitant]
     Indication: DIARRHOEA
     Dosage: 2 MG, QD
     Route: 048
     Dates: start: 20120330, end: 20120413
  5. TELAVIC [Suspect]
     Route: 048
     Dates: start: 20120525
  6. PEG-INTRON [Suspect]
     Dosage: 0.75MCG/KG/WEEK
     Route: 058
     Dates: start: 20120601
  7. ALLOPURINOL [Concomitant]
     Indication: PRODUCT USED FOR UNKNOWN INDICATION
     Dosage: UPDATE (29JUN2012)
     Route: 048
     Dates: start: 20120427, end: 20120503
  8. ALLOPURINOL [Concomitant]
     Dosage: UPDATE (29JUN2012)
     Route: 048
     Dates: start: 20120518
  9. LANIZAC [Concomitant]
     Indication: GASTRIC ULCER
     Route: 048
  10. VALSARTAN  AND HYDROCHLOROTHIAZIDE [Concomitant]
     Route: 048
     Dates: start: 20120315
  11. URSO 250 [Concomitant]
     Indication: HEPATITIS C
     Dosage: 300 MG, QD
     Route: 048
     Dates: end: 20120326
  12. SODIUM FERROUS CITRATE [Concomitant]
     Indication: PRODUCT USED FOR UNKNOWN INDICATION
     Dosage: UPDATE (29JUN2012): STRENGTH: 50 MG
     Route: 048
     Dates: start: 20120511, end: 20120524
  13. TELAVIC [Suspect]
     Indication: HEPATITIS C
     Route: 048
     Dates: start: 20120309, end: 20120426
  14. REBETOL [Suspect]
     Indication: HEPATITIS C
     Dosage: 1000 MG, QD
     Route: 048
     Dates: start: 20120309, end: 20120412
  15. RANITIDINE HYDROCHLORIDE [Concomitant]
     Indication: GASTRIC ULCER
     Dosage: 300 MG, QD
     Route: 048
  16. ANTIVIRAL (UNSPECIFIED) [Suspect]
     Dosage: 750 MG, QD
     Route: 048
     Dates: start: 20120427, end: 20120501
  17. VALSARTAN  AND HYDROCHLOROTHIAZIDE [Concomitant]
     Indication: HYPERTENSION
     Route: 048
     Dates: end: 20120314
  18. REBETOL [Suspect]
     Dosage: 800 MG, QD
     Route: 048
     Dates: start: 20120413, end: 20120426
  19. BEZAFIBRATE [Concomitant]
     Indication: HYPERLIPIDAEMIA
     Dosage: UPDATE (29JUN2012): TRADE NAME UNKNOWN
     Route: 048
  20. TELAVIC [Suspect]
     Route: 048
     Dates: start: 20120427, end: 20120501
  21. BEZAFIBRATE [Concomitant]
     Route: 048
  22. PEG-INTRON [Suspect]
     Dosage: 0.6MCG/KG/WEEK
     Route: 058
     Dates: start: 20120427, end: 20120427
  23. PEG-INTRON [Suspect]
     Dosage: 0.6MCG/KG/WEEK
     Route: 058
     Dates: start: 20120518, end: 20120525
  24. ANTIVIRAL (UNSPECIFIED) [Suspect]
     Dosage: 750 MG, QD
     Route: 048
     Dates: start: 20120525
  25. ALLOPURINOL [Concomitant]
     Indication: BLOOD URIC ACID INCREASED
     Dosage: UPDATE (29JUN2012)
     Route: 048
     Dates: start: 20120420, end: 20120426
  26. ALLOPURINOL [Concomitant]
     Dosage: UPDATE (29JUN2012)
     Route: 048
     Dates: start: 20120504, end: 20120517

REACTIONS (3)
  - ANAEMIA [None]
  - PLATELET COUNT DECREASED [None]
  - HAEMOGLOBIN DECREASED [None]
